FAERS Safety Report 9586536 (Version 2)
Quarter: 2013Q4

REPORT INFORMATION
  Report Type: Report from Study
  Country: US (occurrence: US)
  Receive Date: 20131003
  Receipt Date: 20131113
  Transmission Date: 20140711
  Serious: Yes (Death, Hospitalization)
  Sender: FDA-Public Use
  Company Number: US-ASTELLAS-2013US010276

PATIENT
  Age: 68 Year
  Sex: Male

DRUGS (1)
  1. ERLOTINIB TABLET [Suspect]
     Indication: HEAD AND NECK CANCER
     Dosage: 150 MG, UNKNOWN/D
     Route: 065

REACTIONS (4)
  - Off label use [Unknown]
  - Haemorrhage [Unknown]
  - Respiratory failure [Fatal]
  - Cardiac arrest [Fatal]
